FAERS Safety Report 24704770 (Version 1)
Quarter: 2024Q4

REPORT INFORMATION
  Report Type: Spontaneous
  Country: US (occurrence: US)
  Receive Date: 20241206
  Receipt Date: 20241206
  Transmission Date: 20250115
  Serious: No
  Sender: CSL BEHRING
  Company Number: US-BEH-2024186867

PATIENT
  Sex: Male

DRUGS (3)
  1. HIZENTRA [Suspect]
     Active Substance: HUMAN IMMUNOGLOBULIN G
     Indication: Hypogammaglobulinaemia
     Dosage: 8 G, QW
     Route: 058
  2. SYNTHROID [Concomitant]
     Active Substance: LEVOTHYROXINE SODIUM
  3. CANNABIDIOL [Concomitant]
     Active Substance: CANNABIDIOL

REACTIONS (4)
  - Sinusitis [Unknown]
  - Asthenia [Unknown]
  - Product dose omission in error [Unknown]
  - Memory impairment [Unknown]
